FAERS Safety Report 7602554-0 (Version None)
Quarter: 2011Q3

REPORT INFORMATION
  Report Type: 
  Country: None (occurrence: None)
  Receive Date: 20110707
  Receipt Date: 20110412
  Transmission Date: 20111222
  Serious: Yes (Hospitalization)
  Sender: FDA-Public Use
  Company Number: US-CYPR-2010-000008

PATIENT
  Sex: Male
  Weight: 103 kg

DRUGS (10)
  1. THIAMINE CHLORIDE [Concomitant]
  2. MAG-OX [Concomitant]
  3. ASPIRIN [Suspect]
     Indication: ANTIPLATELET THERAPY
     Dosage: (81 MG QD ORAL) ; (325 MG QD ORAL)
     Route: 048
     Dates: start: 20091012, end: 20091101
  4. ASPIRIN [Suspect]
     Indication: ANTIPLATELET THERAPY
     Dosage: (81 MG QD ORAL) ; (325 MG QD ORAL)
     Route: 048
     Dates: start: 20091101
  5. SEROQUEL [Concomitant]
  6. LOPRESSOR [Concomitant]
  7. CLOPIDOGREL [Suspect]
     Indication: ANTIPLATELET THERAPY
     Dosage: (75 MG QD ORAL) ; (75 MG QD ORAL)
     Route: 048
     Dates: start: 20101012, end: 20101219
  8. CLOPIDOGREL [Suspect]
     Indication: ANTIPLATELET THERAPY
     Dosage: (75 MG QD ORAL) ; (75 MG QD ORAL)
     Route: 048
     Dates: start: 20101222
  9. CYPHER STENT [Concomitant]
  10. ALLOPURINOL [Concomitant]

REACTIONS (1)
  - CONVULSION [None]
